FAERS Safety Report 19454201 (Version 1)
Quarter: 2021Q2

REPORT INFORMATION
  Report Type: Spontaneous
  Country: HR (occurrence: HR)
  Receive Date: 20210623
  Receipt Date: 20210623
  Transmission Date: 20210717
  Serious: Yes (Life-Threatening, Other)
  Sender: FDA-Public Use
  Company Number: HR-SLATE RUN PHARMACEUTICALS-21HR000535

PATIENT

DRUGS (4)
  1. FLUCLOXACILLIN [Concomitant]
     Active Substance: FLUCLOXACILLIN
     Indication: ANTIBIOTIC THERAPY
  2. VANCOMYCIN HYDROCHLORIDE USP [Suspect]
     Active Substance: VANCOMYCIN HYDROCHLORIDE
     Indication: PNEUMONIA PNEUMOCOCCAL
     Dosage: UNK
  3. CEFTRIAXONE. [Concomitant]
     Active Substance: CEFTRIAXONE
     Indication: PNEUMONIA PNEUMOCOCCAL
  4. MEROPENEM. [Concomitant]
     Active Substance: MEROPENEM
     Indication: PNEUMONIA PNEUMOCOCCAL

REACTIONS (16)
  - Sepsis [Unknown]
  - Cardiac failure [Recovered/Resolved]
  - Endocarditis [Recovered/Resolved]
  - COVID-19 [Unknown]
  - Acute kidney injury [Recovered/Resolved]
  - Aortic valve disease [Recovered/Resolved]
  - Cardiac ventricular disorder [Recovered/Resolved]
  - Haemodynamic instability [Recovered/Resolved]
  - Ejection fraction decreased [Recovered/Resolved]
  - Tricuspid valve incompetence [Recovered/Resolved]
  - Acute respiratory distress syndrome [Unknown]
  - Cardio-respiratory arrest [Recovered/Resolved]
  - Aortic valve incompetence [Recovered/Resolved]
  - Respiratory failure [Unknown]
  - Pleural effusion [Unknown]
  - COVID-19 pneumonia [Unknown]

NARRATIVE: CASE EVENT DATE: 202010
